FAERS Safety Report 17158727 (Version 10)
Quarter: 2020Q1

REPORT INFORMATION
  Report Type: Report from Study
  Country: KR (occurrence: KR)
  Receive Date: 20191216
  Receipt Date: 20200117
  Transmission Date: 20200409
  Serious: Yes (Hospitalization)
  Sender: FDA-Public Use
  Company Number: KR-EISAI MEDICAL RESEARCH-EC-2019-067092

PATIENT
  Age: 78 Year
  Sex: Female
  Weight: 59.2 kg

DRUGS (30)
  1. ALFOCHOLINE [Concomitant]
     Dates: start: 20190827
  2. LENVATINIB [Suspect]
     Active Substance: LENVATINIB
     Indication: MALIGNANT MELANOMA STAGE IV
  3. PEMBROLIZUMAB. [Suspect]
     Active Substance: PEMBROLIZUMAB
     Indication: MALIGNANT MELANOMA STAGE III
     Route: 041
     Dates: start: 20190529, end: 20191118
  4. INDAPAMIDE. [Concomitant]
     Active Substance: INDAPAMIDE
     Dates: start: 20190521
  5. TACOPEN [Concomitant]
     Dates: start: 20190805
  6. FULLEYELONE T [Concomitant]
     Dates: start: 20190829
  7. ENAFON [Concomitant]
     Dates: start: 20191115
  8. ENTELON [Concomitant]
     Dates: start: 201501
  9. OCUVITE PRESERVISION [Concomitant]
     Dates: start: 201501, end: 20191231
  10. AUGMENTIN [Concomitant]
     Active Substance: AMOXICILLIN\CLAVULANATE POTASSIUM
     Dates: start: 20191016, end: 20191231
  11. GLUCOPHAGE [Concomitant]
     Active Substance: METFORMIN HYDROCHLORIDE
     Dates: start: 20191026
  12. KABALIN [Concomitant]
     Dates: start: 20191028
  13. OPALMON [Concomitant]
     Active Substance: LIMAPROST
     Dates: start: 20191028
  14. LENVATINIB [Suspect]
     Active Substance: LENVATINIB
     Indication: MALIGNANT MELANOMA STAGE III
     Route: 048
     Dates: start: 20190529, end: 20191205
  15. PAXIL CR [Concomitant]
     Active Substance: PAROXETINE HYDROCHLORIDE
     Dates: start: 20190911
  16. QUINOVID [Concomitant]
     Dates: start: 20190829
  17. LIPIDIL SUPRA [Concomitant]
     Active Substance: FENOFIBRATE
     Dates: start: 20191026
  18. PEMBROLIZUMAB. [Suspect]
     Active Substance: PEMBROLIZUMAB
     Indication: MALIGNANT MELANOMA STAGE IV
     Route: 041
     Dates: start: 20191206, end: 20191206
  19. BEAROBAN [Concomitant]
     Dates: start: 20190730
  20. GASTER [Concomitant]
     Active Substance: FAMOTIDINE
     Dates: start: 20190821
  21. LAMINA G [Concomitant]
     Active Substance: SODIUM ALGINATE
     Dates: start: 20190821
  22. SYNTHROID [Concomitant]
     Active Substance: LEVOTHYROXINE SODIUM
     Dates: start: 20191019
  23. SUGANON [Concomitant]
     Active Substance: EVOGLIPTIN TARTRATE
     Dates: start: 20191109
  24. TELMINUVO [Concomitant]
     Active Substance: LEVAMLODIPINE\TELMISARTAN
     Dates: start: 20190827
  25. MOTILITONE [Concomitant]
     Active Substance: HERBALS
     Dates: start: 20191206, end: 20191206
  26. RAPISON [Concomitant]
     Dates: start: 20191206, end: 20191206
  27. DONEPEZIL HYDROCHLORIDE. [Concomitant]
     Active Substance: DONEPEZIL HYDROCHLORIDE
     Dates: start: 201501
  28. TORAVINDEX [Concomitant]
     Dates: start: 20191105
  29. DERBISOL [Concomitant]
  30. HYDROCORTISONE ACETATE. [Concomitant]
     Active Substance: HYDROCORTISONE ACETATE

REACTIONS (1)
  - Immune-mediated hepatitis [Recovered/Resolved]

NARRATIVE: CASE EVENT DATE: 20191206
